FAERS Safety Report 11892707 (Version 1)
Quarter: 2016Q1

REPORT INFORMATION
  Report Type: Spontaneous
  Country: US (occurrence: US)
  Receive Date: 20160106
  Receipt Date: 20160106
  Transmission Date: 20160526
  Serious: No
  Sender: FDA-Public Use
  Company Number: US-PFIZER INC-2015439026

PATIENT
  Sex: Female

DRUGS (1)
  1. MENEST [Suspect]
     Active Substance: ESTROGENS, ESTERIFIED

REACTIONS (3)
  - Malaise [Unknown]
  - Intentional product use issue [Unknown]
  - Irritable bowel syndrome [Unknown]
